FAERS Safety Report 5618794-6 (Version None)
Quarter: 2008Q1

REPORT INFORMATION
  Report Type: 
  Country: None (occurrence: None)
  Receive Date: 20080207
  Receipt Date: 20070226
  Transmission Date: 20080703
  Serious: No
  Sender: FDA-Public Use
  Company Number: US-BRISTOL-MYERS SQUIBB COMPANY-13692793

PATIENT
  Sex: Male

DRUGS (1)
  1. LYSODREN [Suspect]
     Indication: ACCIDENTAL EXPOSURE

REACTIONS (2)
  - DIZZINESS [None]
  - LETHARGY [None]
